FAERS Safety Report 7982030-6 (Version None)
Quarter: 2011Q4

REPORT INFORMATION
  Report Type: 
  Country: None (occurrence: None)
  Receive Date: 20111215
  Receipt Date: 20111212
  Transmission Date: 20120403
  Serious: Yes (Other)
  Sender: FDA-Public Use
  Company Number: BR-PFIZER INC-2011302988

PATIENT
  Age: 46 Year
  Sex: Male
  Weight: 65 kg

DRUGS (3)
  1. CLONAZEPAM [Concomitant]
     Indication: DEPRESSION
  2. VARENICLINE TARTRATE [Suspect]
     Dosage: 2 TABLETS DAILY
     Route: 048
     Dates: start: 20110101
  3. VARENICLINE TARTRATE [Suspect]
     Indication: TOBACCO USER
     Dosage: UNK
     Route: 048
     Dates: start: 20111128, end: 20110101

REACTIONS (1)
  - ALCOHOLISM [None]
